FAERS Safety Report 11894126 (Version 2)
Quarter: 2016Q1

REPORT INFORMATION
  Report Type: Spontaneous
  Country: MX (occurrence: MX)
  Receive Date: 20160107
  Receipt Date: 20160111
  Transmission Date: 20160526
  Serious: Yes (Hospitalization)
  Sender: FDA-Public Use
  Company Number: MX-HORIZON-ACT-0235-2015

PATIENT
  Age: 27 Year
  Sex: Male
  Weight: 51 kg

DRUGS (3)
  1. IMUKIN [Suspect]
     Active Substance: INTERFERON GAMMA
     Indication: CHRONIC GRANULOMATOUS DISEASE
     Dosage: 173.9 ?G DAILY
     Route: 058
     Dates: start: 20141201
  2. VORICONAZOL [Concomitant]
     Active Substance: VORICONAZOLE
     Indication: BRONCHOPULMONARY ASPERGILLOSIS
     Dosage: 400MG QD
     Route: 048
     Dates: start: 20141201
  3. IMMUNOGLOBULIN [Concomitant]
     Active Substance: HUMAN IMMUNOGLOBULIN G
     Indication: CHRONIC GRANULOMATOUS DISEASE
     Dosage: 400 MG/KG
     Route: 042
     Dates: start: 20141201

REACTIONS (1)
  - Serratia bacteraemia [Recovered/Resolved]

NARRATIVE: CASE EVENT DATE: 20151204
